FAERS Safety Report 8395513-4 (Version None)
Quarter: 2012Q2

REPORT INFORMATION
  Report Type: 
  Country: None (occurrence: None)
  Receive Date: 20120530
  Receipt Date: 20110523
  Transmission Date: 20120825
  Serious: No
  Sender: FDA-Public Use
  Company Number: US-GLAXOSMITHKLINE-A0929676A

PATIENT
  Age: 89 Year
  Sex: Female

DRUGS (8)
  1. DIOVAN [Concomitant]
  2. DULERA [Suspect]
     Indication: CHRONIC OBSTRUCTIVE PULMONARY DISEASE
     Dosage: 1PUFF TWICE PER DAY
     Route: 055
     Dates: start: 20110401
  3. VENTOLIN [Suspect]
     Indication: PRODUCT USED FOR UNKNOWN INDICATION
     Route: 055
  4. ALPRAZOLAM [Concomitant]
  5. PLAVIX [Concomitant]
  6. LIBRIUM [Concomitant]
  7. GLIPIZIDE [Concomitant]
  8. LEVOTHYROXINE SODIUM [Concomitant]

REACTIONS (3)
  - OFF LABEL USE [None]
  - MALAISE [None]
  - VISION BLURRED [None]
